FAERS Safety Report 23666447 (Version 3)
Quarter: 2024Q3

REPORT INFORMATION
  Report Type: Spontaneous
  Country: FR (occurrence: FR)
  Receive Date: 20240324
  Receipt Date: 20240826
  Transmission Date: 20241016
  Serious: Yes (Death, Other)
  Sender: DR REDDYS
  Company Number: None

PATIENT
  Age: 64 Year
  Sex: Male

DRUGS (18)
  1. CYCLOPHOSPHAMIDE [Suspect]
     Active Substance: CYCLOPHOSPHAMIDE
     Indication: Lymphoma
  2. PREDNISOLONE [Suspect]
     Active Substance: PREDNISOLONE
     Indication: Lymphoma
  3. RITUXIMAB [Suspect]
     Active Substance: RITUXIMAB
     Indication: Lymphoma
  4. RITUXIMAB [Suspect]
     Active Substance: RITUXIMAB
     Dosage: FOUR INFUSIONS OF 375 MG/M2 ONE WEEK APART
     Route: 042
  5. OXALIPLATIN [Suspect]
     Active Substance: OXALIPLATIN
     Indication: Lymphoma
  6. GEMCITABINE [Suspect]
     Active Substance: GEMCITABINE
     Indication: Lymphoma
  7. TACROLIMUS [Suspect]
     Active Substance: TACROLIMUS
     Indication: Lymphoma
  8. ETOPOSIDE [Suspect]
     Active Substance: ETOPOSIDE
     Indication: Lymphoma
  9. IFOSFAMIDE [Suspect]
     Active Substance: IFOSFAMIDE
     Indication: Lymphoma
  10. VINCRISTINE [Suspect]
     Active Substance: VINCRISTINE
     Indication: Lymphoma
  11. EVEROLIMUS [Suspect]
     Active Substance: EVEROLIMUS
     Indication: Lymphoma
  12. DOXORUBICIN [Suspect]
     Active Substance: DOXORUBICIN
     Indication: Lymphoma
  13. FAVIPIRAVIR [Suspect]
     Active Substance: FAVIPIRAVIR
     Indication: Norovirus infection
     Dosage: D14 TO 23
  14. FAVIPIRAVIR [Suspect]
     Active Substance: FAVIPIRAVIR
     Dosage: D24 TO 32
  15. FAVIPIRAVIR [Suspect]
     Active Substance: FAVIPIRAVIR
     Dosage: D1 TO 13
  16. FAVIPIRAVIR [Suspect]
     Active Substance: FAVIPIRAVIR
     Dosage: AT DAY 33
  17. NITAZOXANIDE [Suspect]
     Active Substance: NITAZOXANIDE
     Indication: Norovirus infection
  18. METRONIDAZOLE [Suspect]
     Active Substance: METRONIDAZOLE
     Indication: Parasitic gastroenteritis

REACTIONS (6)
  - Disease progression [Fatal]
  - Bacterial infection [Fatal]
  - Treatment failure [Fatal]
  - Norovirus infection [Fatal]
  - Sepsis [Unknown]
  - Parasitic gastroenteritis [Recovered/Resolved]
